FAERS Safety Report 10366663 (Version 1)
Quarter: 2014Q3

REPORT INFORMATION
  Report Type: Spontaneous
  Country: US (occurrence: US)
  Receive Date: 20140806
  Receipt Date: 20140806
  Transmission Date: 20150326
  Serious: No
  Sender: FDA-Public Use
  Company Number: US-009507513-1408USA003123

PATIENT
  Sex: Female

DRUGS (3)
  1. NASONEX [Suspect]
     Active Substance: MOMETASONE FUROATE
     Indication: HYPERSENSITIVITY
  2. ALLEGRA [Concomitant]
     Active Substance: FEXOFENADINE HYDROCHLORIDE
  3. NASONEX [Suspect]
     Active Substance: MOMETASONE FUROATE
     Indication: HEADACHE
     Dosage: 50MCG/ TWO SPRAYS IN EACH NOSTRIL DAILY
     Route: 045
     Dates: start: 200408

REACTIONS (2)
  - Product physical consistency issue [Unknown]
  - Headache [Not Recovered/Not Resolved]
